FAERS Safety Report 10260547 (Version 1)
Quarter: 2014Q2

REPORT INFORMATION
  Report Type: Report from Study
  Country: US (occurrence: US)
  Receive Date: 20140626
  Receipt Date: 20140626
  Transmission Date: 20141212
  Serious: Yes (Other)
  Sender: FDA-Public Use
  Company Number: US-ROCHE-1422489

PATIENT
  Sex: Female
  Weight: 25.5 kg

DRUGS (12)
  1. MYCOPHENOLATE MOFETIL [Suspect]
     Indication: PRODUCT USED FOR UNKNOWN INDICATION
     Route: 048
  2. URSODIOL [Concomitant]
     Dosage: 1 CAPSULE (300 MG TOTAL) BY MOUTH 2 TIMES A DAILY
     Route: 048
  3. SIROLIMUS [Concomitant]
     Dosage: 2 TABLET (2 MG TOTAL) BY MOUTH ONCE A DAY
     Route: 048
  4. CYPROHEPTADINE [Concomitant]
     Dosage: TAKE 0.5 TABLET (2 MG TOTAL) BY MOUTH 2 TIMES DAILY
     Route: 048
  5. ASCORBIC ACID [Concomitant]
     Dosage: TABS
     Route: 048
  6. PREDNISONE [Concomitant]
     Dosage: TAB
     Route: 048
  7. CHOLECALCIFEROL [Concomitant]
     Dosage: CAPSULE
     Route: 048
  8. ACTIGALL [Concomitant]
  9. BACTRIM [Concomitant]
     Dosage: 0.5 TABLETS(S) (40 MG TOTAL)
     Route: 065
  10. PEDIASURE [Concomitant]
     Dosage: 3 CANS
     Route: 048
  11. ALBUTEROL [Concomitant]
     Dosage: 2 PUFF BY INHALED ROUTE EVERY 6 HOURS AS NEEDED FOR WHEEZING
     Route: 065
  12. BUDESONIDE [Concomitant]
     Dosage: 0.5 MG/2ML ?2ML (0.5 MG TOTAL) BY NEBULIZER
     Route: 065

REACTIONS (3)
  - Rib fracture [Unknown]
  - Cough [Unknown]
  - Growth retardation [Unknown]
